FAERS Safety Report 8916783 (Version 1)
Quarter: 2012Q4

REPORT INFORMATION
  Report Type: 
  Country: US (occurrence: US)
  Receive Date: 20121120
  Receipt Date: 20121120
  Transmission Date: 20130627
  Serious: No
  Sender: FDA-Public Use
  Company Number: US-PFIZER INC-2012287376

PATIENT
  Age: 43 Year
  Sex: Male
  Weight: 92.97 kg

DRUGS (1)
  1. VIAGRA [Suspect]
     Indication: ERECTION INADEQUATE
     Dosage: 50 mg, as needed
     Route: 048

REACTIONS (1)
  - Drug ineffective [Unknown]
